FAERS Safety Report 8880487 (Version 1)
Quarter: 2012Q4

REPORT INFORMATION
  Report Type: 
  Country: GB (occurrence: GB)
  Receive Date: 20121101
  Receipt Date: 20121101
  Transmission Date: 20130627
  Serious: Yes (Other)
  Sender: FDA-Public Use
  Company Number: GB-UCBSA-069899

PATIENT
  Sex: Male

DRUGS (3)
  1. NEUPRO [Suspect]
     Indication: PARKINSON^S DISEASE
     Dosage: 8 MG
  2. NEUPRO [Suspect]
     Indication: PARKINSON^S DISEASE
     Dosage: 4MG
  3. WARFARIN [Concomitant]
     Indication: ATRIAL FIBRILLATION

REACTIONS (5)
  - Suicidal ideation [Unknown]
  - Atrial fibrillation [Unknown]
  - Type 1 diabetes mellitus [Unknown]
  - Tremor [Not Recovered/Not Resolved]
  - Wrong technique in drug usage process [Recovered/Resolved]
